FAERS Safety Report 13687570 (Version 1)
Quarter: 2017Q2

REPORT INFORMATION
  Report Type: Report from Study
  Country: US (occurrence: US)
  Receive Date: 20170624
  Receipt Date: 20170624
  Transmission Date: 20170830
  Serious: No
  Sender: FDA-Public Use
  Company Number: GXBR2017US001980

PATIENT
  Age: 37 Year
  Sex: Female
  Weight: 81.64 kg

DRUGS (1)
  1. GLATOPA [Suspect]
     Active Substance: GLATIRAMER ACETATE
     Indication: MULTIPLE SCLEROSIS
     Dosage: 20 MG, QD
     Route: 058

REACTIONS (7)
  - Injection site hypersensitivity [Unknown]
  - Injection site pruritus [Unknown]
  - Localised infection [Unknown]
  - Nervousness [Unknown]
  - Injection site warmth [Unknown]
  - Injection site mass [Unknown]
  - Injection site erythema [Unknown]

NARRATIVE: CASE EVENT DATE: 20170611
